FAERS Safety Report 22259295 (Version 1)
Quarter: 2023Q2

REPORT INFORMATION
  Report Type: Report from Study
  Country: NL (occurrence: NL)
  Receive Date: 20230427
  Receipt Date: 20230427
  Transmission Date: 20230722
  Serious: Yes (Death, Other)
  Sender: FDA-Public Use
  Company Number: NL-VER-202300040

PATIENT
  Sex: Male

DRUGS (2)
  1. TRIPTORELIN [Suspect]
     Active Substance: TRIPTORELIN
     Indication: Prostate cancer
     Dosage: EXPIRATION DATE WAS NOT REPORTED. ADDITIONAL INFORMATION ON DRUG: 22.5MG SOLV 2ML (1ST), 1.00 X PER
     Route: 030
     Dates: start: 20220518, end: 20220518
  2. TRIPTORELIN [Suspect]
     Active Substance: TRIPTORELIN
     Indication: Prostate cancer
     Dosage: EXPIRATION DATE WAS NOT REPORTED. ADDITIONAL INFORMATION ON DRUG: 22.5MG SOLV 2ML (1ST), 1.00 X PER
     Route: 030
     Dates: start: 20221116, end: 20221116

REACTIONS (1)
  - Death [Fatal]
